FAERS Safety Report 5357474-1 (Version None)
Quarter: 2007Q2

REPORT INFORMATION
  Report Type: 
  Country: None (occurrence: None)
  Receive Date: 20070530
  Receipt Date: 20070222
  Transmission Date: 20071010
  Serious: Yes (Other)
  Sender: FDA-Public Use
  Company Number: US_0510123028

PATIENT
  Age: 33 Year
  Sex: Male
  Weight: 77.3 kg

DRUGS (4)
  1. ZYPREXA [Suspect]
     Indication: DEPRESSION
     Dates: start: 19991201, end: 20051001
  2. RISPERDAL(OLANZAPINE UNKNOWN FORMULATION) UNKNOWN [Concomitant]
     Indication: DEPRESSION
     Dates: start: 19991201, end: 20051001
  3. RISPERDAL [Concomitant]
  4. SEROQUEL [Concomitant]

REACTIONS (2)
  - DIABETES MELLITUS [None]
  - WEIGHT INCREASED [None]
